FAERS Safety Report 14974181 (Version 1)
Quarter: 2018Q2

REPORT INFORMATION
  Report Type: Spontaneous
  Country: CN (occurrence: CN)
  Receive Date: 20180605
  Receipt Date: 20180605
  Transmission Date: 20180711
  Serious: Yes (Other)
  Sender: FDA-Public Use
  Company Number: CN-VIRTUS PHARMACEUTICALS, LLC-2018VTS00081

PATIENT
  Sex: Female

DRUGS (2)
  1. UNSPECIFIED MULTIDRUG TREATMENT [Concomitant]
     Indication: LEPROSY
     Route: 065
  2. DAPSONE. [Suspect]
     Active Substance: DAPSONE
     Indication: LEPROSY

REACTIONS (1)
  - Drug reaction with eosinophilia and systemic symptoms [Unknown]
